FAERS Safety Report 21607253 (Version 3)
Quarter: 2023Q1

REPORT INFORMATION
  Report Type: Report from Study
  Country: CA (occurrence: CA)
  Receive Date: 20221117
  Receipt Date: 20230220
  Transmission Date: 20230417
  Serious: Yes (Other)
  Sender: FDA-Public Use
  Company Number: CA-JNJFOC-20221126748

PATIENT
  Age: 9 Year
  Sex: Female
  Weight: 19 kg

DRUGS (3)
  1. REMICADE [Suspect]
     Active Substance: INFLIXIMAB
     Indication: Crohn^s disease
     Dosage: INFUSION SCHEDULED 0,2, 6 THAN EVERY 6 WEEK
     Route: 042
     Dates: start: 20221110
  2. REMICADE [Suspect]
     Active Substance: INFLIXIMAB
     Route: 042
  3. REMICADE [Suspect]
     Active Substance: INFLIXIMAB
     Route: 042

REACTIONS (3)
  - Crohn^s disease [Unknown]
  - Drug level increased [Unknown]
  - Off label use [Unknown]

NARRATIVE: CASE EVENT DATE: 20221101
